FAERS Safety Report 21571419 (Version 1)
Quarter: 2022Q4

REPORT INFORMATION
  Report Type: Spontaneous
  Country: US (occurrence: None)
  Receive Date: 20221107
  Receipt Date: 20221107
  Transmission Date: 20230113
  Serious: Yes (Hospitalization)
  Sender: FDA-Public Use
  Company Number: None

PATIENT
  Age: 61 Year
  Sex: Male
  Weight: 91 kg

DRUGS (1)
  1. METHOCARBAMOL [Suspect]
     Active Substance: METHOCARBAMOL
     Indication: Pain
     Dosage: FREQUENCY : 4 TIMES A DAY;?
     Route: 048
     Dates: start: 20220824, end: 20220825

REACTIONS (8)
  - Rash pruritic [None]
  - Swelling face [None]
  - Dysphonia [None]
  - Nausea [None]
  - Angioedema [None]
  - Therapy cessation [None]
  - Throat tightness [None]
  - Anaphylactic reaction [None]

NARRATIVE: CASE EVENT DATE: 20220825
